FAERS Safety Report 17899985 (Version 1)
Quarter: 2020Q2

REPORT INFORMATION
  Report Type: Spontaneous
  Country: US (occurrence: US)
  Receive Date: 20200616
  Receipt Date: 20200616
  Transmission Date: 20200714
  Serious: No
  Sender: FDA-Public Use
  Company Number: US-BRISTOL-MYERS SQUIBB COMPANY-BMS-2020-047422

PATIENT
  Sex: Female

DRUGS (1)
  1. ELIQUIS [Suspect]
     Active Substance: APIXABAN
     Indication: PRODUCT USED FOR UNKNOWN INDICATION
     Dosage: PATIENT CUTTING 5 MG TABLETS TO TAKE 2.5 MG TWICE DAILY INSTEAD OF PRESCRIBED 5 MG TWICE DAILY
     Route: 065

REACTIONS (1)
  - Wrong technique in product usage process [Unknown]
